FAERS Safety Report 9009857 (Version 1)
Quarter: 2013Q1

REPORT INFORMATION
  Report Type: Spontaneous
  Country: US (occurrence: US)
  Receive Date: 20130110
  Receipt Date: 20130110
  Transmission Date: 20140127
  Serious: Yes (Hospitalization, Other)
  Sender: FDA-Public Use
  Company Number: US-SANOFI-AVENTIS-2013SA000223

PATIENT
  Age: 31 Year
  Sex: Female

DRUGS (1)
  1. LOVENOX [Suspect]
     Indication: PROPHYLAXIS
     Route: 065
     Dates: start: 2010

REACTIONS (3)
  - Placenta praevia [Recovered/Resolved]
  - Haemorrhage [Unknown]
  - Exposure during pregnancy [Unknown]
